FAERS Safety Report 10314377 (Version 1)
Quarter: 2014Q3

REPORT INFORMATION
  Report Type: Spontaneous
  Country: US (occurrence: US)
  Receive Date: 20140718
  Receipt Date: 20140718
  Transmission Date: 20150326
  Serious: Yes (Other)
  Sender: FDA-Public Use
  Company Number: US-PFIZER INC-2014198054

PATIENT
  Age: 55 Year
  Sex: Male
  Weight: 142 kg

DRUGS (1)
  1. VIAGRA [Suspect]
     Active Substance: SILDENAFIL CITRATE
     Indication: ERECTILE DYSFUNCTION
     Dosage: ^5 MG TABLET AS NEEDED^, 20-30 TABLETS
     Route: 048
     Dates: start: 20140714, end: 20140714

REACTIONS (3)
  - Penis disorder [Not Recovered/Not Resolved]
  - Overdose [Recovered/Resolved]
  - Erection increased [Not Recovered/Not Resolved]

NARRATIVE: CASE EVENT DATE: 20140714
